FAERS Safety Report 7315732-5 (Version None)
Quarter: 2011Q1

REPORT INFORMATION
  Report Type: 
  Country: None (occurrence: None)
  Receive Date: 20110225
  Receipt Date: 20100618
  Transmission Date: 20110831
  Serious: Yes (Other)
  Sender: FDA-Public Use
  Company Number: US-BAYER-200942046NA

PATIENT
  Sex: Female
  Weight: 81.633 kg

DRUGS (10)
  1. YAZ [Suspect]
     Indication: ACNE
     Dosage: UNK
     Dates: start: 20080801, end: 20081101
  2. VITAMIN D [Concomitant]
  3. YASMIN [Suspect]
     Indication: ACNE
  4. YASMIN [Suspect]
     Indication: MOOD SWINGS
  5. YAZ [Suspect]
     Indication: PREMENSTRUAL SYNDROME
  6. MULTI-VITAMIN [Concomitant]
     Dosage: UNK UNK, BID
  7. YAZ [Suspect]
     Indication: CONTRACEPTION
     Dosage: DAILY DOSE 1 DF
     Route: 048
     Dates: start: 20061001, end: 20080127
  8. YAZ [Suspect]
     Indication: MOOD SWINGS
  9. YASMIN [Suspect]
     Indication: CONTRACEPTION
     Dosage: 1 DF (DAILY DOSE), QD, ORAL
     Route: 048
     Dates: start: 20010101, end: 20060101
  10. YASMIN [Suspect]
     Indication: PREMENSTRUAL SYNDROME

REACTIONS (5)
  - CHOLELITHIASIS [None]
  - ABDOMINAL PAIN [None]
  - VOMITING [None]
  - INCISION SITE PAIN [None]
  - CHOLECYSTITIS [None]
